FAERS Safety Report 9891969 (Version 2)
Quarter: 2014Q1

REPORT INFORMATION
  Report Type: Spontaneous
  Country: JP (occurrence: JP)
  Receive Date: 20140212
  Receipt Date: 20140217
  Transmission Date: 20141002
  Serious: Yes (Death)
  Sender: FDA-Public Use
  Company Number: JP-CUBIST PHARMACEUTICAL, INC.-2014CBST000168

PATIENT
  Age: 40 Year
  Sex: Male
  Weight: 135 kg

DRUGS (2)
  1. CUBICIN [Suspect]
     Indication: SEPSIS
     Dosage: 810 MG, QD
     Route: 041
     Dates: start: 201401, end: 201401
  2. MEROPEN                            /01250501/ [Concomitant]
     Indication: PRODUCT USED FOR UNKNOWN INDICATION
     Dosage: 0.5 G, BID
     Route: 041
     Dates: start: 201401, end: 201401

REACTIONS (1)
  - Death [Fatal]
